FAERS Safety Report 11246393 (Version 1)
Quarter: 2015Q2

REPORT INFORMATION
  Report Type: Spontaneous
  Country: US (occurrence: None)
  Receive Date: 20150616
  Receipt Date: 20150616
  Transmission Date: 20150821
  Serious: Yes (Other)
  Sender: FDA-Public Use
  Company Number: USW201501-000019

PATIENT
  Age: 67 Year
  Sex: Male
  Weight: 129.2 kg

DRUGS (1)
  1. APOKYN [Suspect]
     Active Substance: APOMORPHINE HYDROCHLORIDE
     Indication: PARKINSONISM
     Dosage: OD
     Dates: start: 201311, end: 201412

REACTIONS (3)
  - Malaise [None]
  - Urinary tract infection [None]
  - Fatigue [None]

NARRATIVE: CASE EVENT DATE: 20141218
